FAERS Safety Report 10447801 (Version 1)
Quarter: 2014Q3

REPORT INFORMATION
  Report Type: Spontaneous
  Country: ES (occurrence: ES)
  Receive Date: 20140911
  Receipt Date: 20140911
  Transmission Date: 20150326
  Serious: Yes (Other)
  Sender: FDA-Public Use
  Company Number: ES-VERTEX PHARMACEUTICALS-2014-003860

PATIENT

DRUGS (1)
  1. INCIVO [Suspect]
     Active Substance: TELAPREVIR
     Indication: PRODUCT USED FOR UNKNOWN INDICATION
     Route: 048

REACTIONS (11)
  - Neutropenia [Unknown]
  - Anorectal discomfort [Unknown]
  - Anaemia [Unknown]
  - Condition aggravated [Unknown]
  - Haematotoxicity [Unknown]
  - Skin reaction [Unknown]
  - Gastrointestinal disorder [Unknown]
  - Rash [Unknown]
  - Hepatic function abnormal [Unknown]
  - Skin toxicity [Unknown]
  - Pruritus [Unknown]
